FAERS Safety Report 8793847 (Version 1)
Quarter: 2012Q4

REPORT INFORMATION
  Report Type: Report from Study
  Country: US (occurrence: US)
  Receive Date: 20120917
  Receipt Date: 20120917
  Transmission Date: 20130627
  Serious: Yes (Hospitalization)
  Sender: FDA-Public Use
  Company Number: US-JNJFOC-20120905473

PATIENT
  Age: 14 Year
  Sex: Female
  Weight: 34.7 kg

DRUGS (8)
  1. REMICADE [Suspect]
     Indication: INFLAMMATORY BOWEL DISEASE
     Route: 042
     Dates: start: 20110827
  2. PREDNISONE [Concomitant]
  3. METHOTREXATE [Concomitant]
  4. MILK OF MAGNESIA [Concomitant]
  5. ZOFRAN [Concomitant]
  6. LANSOPRAZOL [Concomitant]
  7. MULTIVITAMINS [Concomitant]
  8. FOLIC ACID [Concomitant]

REACTIONS (1)
  - Ileal stenosis [Recovered/Resolved with Sequelae]
